FAERS Safety Report 6566633-1 (Version None)
Quarter: 2010Q1

REPORT INFORMATION
  Report Type: 
  Country: None (occurrence: None)
  Receive Date: 20100202
  Receipt Date: 20100127
  Transmission Date: 20100710
  Serious: Yes (Death)
  Sender: FDA-Public Use
  Company Number: US-ROCHE-679162

PATIENT
  Sex: Female

DRUGS (1)
  1. XELODA [Suspect]
     Dosage: TWO WEEKS ON WITH ONE WEEK OFF
     Route: 048

REACTIONS (2)
  - DRUG INTOLERANCE [None]
  - MALIGNANT NEOPLASM PROGRESSION [None]
